FAERS Safety Report 15193858 (Version 1)
Quarter: 2018Q3

REPORT INFORMATION
  Report Type: Spontaneous
  Country: US (occurrence: US)
  Receive Date: 20180725
  Receipt Date: 20180725
  Transmission Date: 20181010
  Serious: No
  Sender: FDA-Public Use
  Company Number: US-AMGEN-USASP2018099723

PATIENT
  Age: 61 Year
  Sex: Female

DRUGS (1)
  1. ENBREL [Suspect]
     Active Substance: ETANERCEPT
     Indication: RHEUMATOID ARTHRITIS
     Dosage: 50 MG, QWK
     Route: 065
     Dates: start: 20180607

REACTIONS (7)
  - Injection site plaque [Recovered/Resolved]
  - Injection site discolouration [Not Recovered/Not Resolved]
  - Therapeutic response shortened [Unknown]
  - Injection site pruritus [Unknown]
  - Injection site erythema [Recovered/Resolved]
  - Grip strength decreased [Unknown]
  - Injection site swelling [Recovered/Resolved]

NARRATIVE: CASE EVENT DATE: 2018
